FAERS Safety Report 15117013 (Version 2)
Quarter: 2018Q3

REPORT INFORMATION
  Report Type: Spontaneous
  Country: RU (occurrence: RU)
  Receive Date: 20180706
  Receipt Date: 20180718
  Transmission Date: 20181010
  Serious: Yes (Hospitalization, Other)
  Sender: FDA-Public Use
  Company Number: RU-JNJFOC-20180707539

PATIENT
  Age: 4 Decade
  Sex: Male

DRUGS (4)
  1. SIMPONI [Suspect]
     Active Substance: GOLIMUMAB
     Indication: ANKYLOSING SPONDYLITIS
     Route: 058
     Dates: start: 2017, end: 20180525
  2. METHOTREXATE. [Concomitant]
     Active Substance: METHOTREXATE
     Route: 065
  3. NISE [Concomitant]
     Active Substance: NIMESULIDE
     Dosage: 2?3 TAB PER WEEK (1 TAB ? 100 MG)
     Route: 065
  4. SIMPONI [Suspect]
     Active Substance: GOLIMUMAB
     Indication: ARTHRITIS
     Route: 058
     Dates: start: 2017, end: 20180525

REACTIONS (8)
  - Intestinal haemorrhage [Unknown]
  - Drug effect decreased [Unknown]
  - Arthralgia [Recovering/Resolving]
  - Shock haemorrhagic [Unknown]
  - Drug specific antibody [Unknown]
  - Drug dose omission [Unknown]
  - Gastrointestinal disorder [Unknown]
  - Body temperature increased [Recovered/Resolved]

NARRATIVE: CASE EVENT DATE: 2017
